FAERS Safety Report 9319432 (Version 1)
Quarter: 2013Q2

REPORT INFORMATION
  Report Type: Spontaneous
  Country: AU (occurrence: None)
  Receive Date: 20130528
  Receipt Date: 20130528
  Transmission Date: 20140414
  Serious: Yes (Hospitalization)
  Sender: FDA-Public Use
  Company Number: 1719066

PATIENT
  Age: 14 Year
  Sex: Female
  Weight: 42.9 kg

DRUGS (7)
  1. VINCRISTINE SULFATE [Suspect]
     Indication: ALVEOLAR RHABDOMYOSARCOMA
     Dosage: (NOT OTHERWISE SPECIFIED)
     Route: 042
     Dates: start: 10120918
  2. IRINOTECAN HYDROCHLORIDE [Suspect]
     Indication: ALVEOLAR RHABDOMYOSARCOMA
     Dosage: 50 MG/M 2 MILLIGRAM (S) (NOT OTHERWISE SPECIFIED)
     Route: 042
     Dates: start: 20120918
  3. ETOPOSIDE [Suspect]
     Indication: ALVEOLAR RHABDOMYOSARCOMA
     Dosage: (NOT OTHERWISE SPECIFIED)
     Route: 042
  4. DOXORUBICIN HYDROCHLORIDE [Suspect]
     Indication: ALVEOLAR RHABDOMYOSARCOMA
     Dosage: (NOT OTHERWISE SPECIFIED)
     Route: 042
  5. CIXUTUMUMAB [Suspect]
     Indication: ALVEOLAR RHABDOMYOSARCOMA
     Dosage: (NOT OTHERWISE SPECIFIED)
     Route: 042
     Dates: start: 20120918
  6. CYCLOPHOSPHAMIDE [Suspect]
     Indication: ALVEOLAR RHABDOMYOSARCOMA
     Dosage: (NOT OTHERWISE SPECIFIED)
     Route: 042
  7. IFOSFAMIDE [Suspect]
     Indication: ALVEOLAR RHABDOMYOSARCOMA
     Dosage: (NOT OTHERWISE SPECIFIED)
     Route: 042

REACTIONS (3)
  - Febrile neutropenia [None]
  - Neutrophil count decreased [None]
  - Stomatitis [None]
